FAERS Safety Report 24693154 (Version 1)
Quarter: 2024Q4

REPORT INFORMATION
  Report Type: Spontaneous
  Country: JP (occurrence: JP)
  Receive Date: 20241203
  Receipt Date: 20241203
  Transmission Date: 20250114
  Serious: Yes (Hospitalization, Other)
  Sender: BAYER HEALTHCARE PHARMACEUTICALS INC.
  Company Number: JP-BAYER-2024A169740

PATIENT
  Age: 62 Year
  Sex: Male

DRUGS (6)
  1. NUBEQA [Suspect]
     Active Substance: DAROLUTAMIDE
     Indication: Prostate cancer
     Dosage: 600 MG, BID
  2. DENOSUMAB [Concomitant]
     Active Substance: DENOSUMAB
     Indication: Bone lesion
  3. DENOSUMAB [Concomitant]
     Active Substance: DENOSUMAB
     Indication: Plasma cell myeloma
  4. DENOSUMAB [Concomitant]
     Active Substance: DENOSUMAB
     Indication: Neoplasm malignant
  5. DENOSUMAB [Concomitant]
     Active Substance: DENOSUMAB
     Indication: Metastases to bone
  6. DOCETAXEL [Concomitant]
     Active Substance: DOCETAXEL
     Indication: Chemotherapy

REACTIONS (2)
  - Myelosuppression [Recovering/Resolving]
  - Hormone-refractory prostate cancer [None]
